FAERS Safety Report 23273906 (Version 1)
Quarter: 2023Q4

REPORT INFORMATION
  Report Type: Spontaneous
  Country: JP (occurrence: JP)
  Receive Date: 20231207
  Receipt Date: 20231207
  Transmission Date: 20240110
  Serious: Yes (Hospitalization, Other)
  Sender: FDA-Public Use
  Company Number: JP-TAKEDA-2023TJP015832

PATIENT
  Sex: Male

DRUGS (2)
  1. VECTIBIX [Suspect]
     Active Substance: PANITUMUMAB
     Indication: Product used for unknown indication
     Dosage: UNK
     Route: 042
  2. VECTIBIX [Suspect]
     Active Substance: PANITUMUMAB
     Dosage: UNK
     Route: 042

REACTIONS (2)
  - Hyperkalaemia [Not Recovered/Not Resolved]
  - Hypomagnesaemia [Not Recovered/Not Resolved]
